FAERS Safety Report 8155026-1 (Version None)
Quarter: 2012Q1

REPORT INFORMATION
  Report Type: 
  Country: None (occurrence: None)
  Receive Date: 20120221
  Receipt Date: 20120220
  Transmission Date: 20120608
  Serious: Yes (Other)
  Sender: FDA-Public Use
  Company Number: PHEH2008US10676

PATIENT
  Sex: Female
  Weight: 56 kg

DRUGS (67)
  1. AREDIA [Suspect]
     Indication: OSTEOPOROSIS
  2. CELEBREX [Concomitant]
     Dosage: 200 MG, UNK
     Route: 048
  3. AMBIEN [Concomitant]
     Dosage: 10 MG, UNK
     Route: 048
  4. FEMARA [Concomitant]
     Dosage: 2.5 MG, UNK
     Route: 048
  5. CHEMOTHERAPEUTICS NOS [Concomitant]
  6. KLOR-CON [Concomitant]
     Dosage: 10 MEQ, QID
  7. CALCITONIN SALMON [Concomitant]
  8. ZOMETA [Suspect]
     Indication: BONE LOSS
     Dosage: UNK UKN, QMO
     Dates: start: 20000101, end: 20060101
  9. POTASSIUM CHLORIDE [Concomitant]
  10. CREON [Concomitant]
  11. VITAMIN TAB [Concomitant]
  12. CYCLOBENZAPRINE [Concomitant]
     Dosage: 10 MG, UNK
     Route: 048
  13. PERCOCET [Concomitant]
     Dosage: 7.5 MG, UNK
     Route: 048
  14. SODIUM CHLORIDE [Concomitant]
  15. PROMETHAZINE [Concomitant]
  16. CYTOXAN [Concomitant]
  17. LORTAB [Concomitant]
  18. CALCIUM [Concomitant]
  19. HEPARIN [Concomitant]
  20. LOVENOX [Concomitant]
  21. AREDIA [Suspect]
     Indication: BONE LOSS
     Dosage: UNK UKN, QMO
     Dates: start: 19990101, end: 20000101
  22. PROPOXYPHENE HCL AND ACETAMINOPHEN [Concomitant]
     Dosage: 100 MG, UNK
     Route: 048
  23. ALPRAZOLAM [Concomitant]
     Dosage: .25 MG, UNK
     Route: 048
  24. AMOXICILLIN [Concomitant]
     Dosage: 500 MG, UNK
     Route: 048
  25. WARFARIN SODIUM [Concomitant]
     Dosage: 1 MG, UNK
     Route: 048
  26. MAGNESIUM [Concomitant]
  27. AFRIN                              /00070002/ [Concomitant]
  28. ACETAMINOPHEN [Concomitant]
  29. DILAUDID [Concomitant]
     Dosage: 0.4 MG, PRN
     Route: 042
  30. COLACE [Concomitant]
     Dosage: 100 MG, BID
  31. ATRACURIUM BESYLATE [Concomitant]
  32. ZOMETA [Suspect]
     Indication: OSTEOPOROSIS
  33. RETIN-A [Concomitant]
     Dosage: 0.05 %, UNK
     Route: 061
  34. DIPROLENE [Concomitant]
     Dosage: .05 %, UNK
  35. HALOTUSSIN [Concomitant]
     Dosage: UNK UKN, UNK
     Route: 048
  36. ARIMIDEX [Concomitant]
  37. UROCIT-K [Concomitant]
  38. AROMASIN [Concomitant]
  39. HYDROCORTISONE [Concomitant]
  40. TAMOXIFEN CITRATE [Concomitant]
     Dosage: UNK
     Dates: start: 19990601, end: 20020101
  41. DECADRON [Concomitant]
  42. ZOFRAN [Concomitant]
     Dosage: 4 MG, Q6H, PRN
     Route: 042
  43. NEXIUM [Concomitant]
     Dosage: 40 MG, QD
     Route: 048
  44. BIAXIN [Concomitant]
     Dosage: 500 MG, UNK
     Route: 048
  45. LORAZEPAM [Concomitant]
     Dosage: 1 MG, UNK
     Route: 048
  46. PAXIL [Concomitant]
     Dosage: 20 MG, UNK
  47. PRILOSEC [Concomitant]
     Dosage: AS NEEDED
  48. NAPROSYN [Concomitant]
  49. RANITIDINE [Concomitant]
     Dosage: 150 MG, UNK
     Route: 048
  50. METHYLPREDNISOLONE [Concomitant]
     Dosage: 4 MG, UNK
     Route: 048
  51. ADIPEX [Concomitant]
     Dosage: 37.5 MG, UNK
     Route: 048
  52. LIPITOR [Concomitant]
     Dosage: 20 MG, UNK
     Route: 048
  53. PREVACID [Concomitant]
  54. COUMADIN [Concomitant]
  55. PROCRIT                            /00909301/ [Concomitant]
  56. SELENIUM [Concomitant]
  57. NAPROXEN [Concomitant]
  58. ARMODAFINIL [Concomitant]
     Dosage: 100 MG, QD
     Route: 048
  59. AUGMENTIN '125' [Concomitant]
     Dosage: 875 MG, TID, PRN
  60. OXYCODONE HCL [Concomitant]
     Dosage: 5 MG, PRN
     Route: 048
  61. LEVAQUIN [Concomitant]
     Dosage: 500 MG, UNK
     Route: 048
  62. WELCHOL [Concomitant]
  63. DIGOXIN [Concomitant]
  64. METOCLOPRAMIDE [Concomitant]
  65. POTASSIUM CHLORIDE [Concomitant]
  66. TEMSIROLIMUS [Concomitant]
  67. PEPCID [Concomitant]

REACTIONS (73)
  - SCOLIOSIS [None]
  - OSTEOSCLEROSIS [None]
  - PLEURAL EFFUSION [None]
  - LOBAR PNEUMONIA [None]
  - OSTEONECROSIS [None]
  - ARTHRALGIA [None]
  - LUNG DISORDER [None]
  - BONE LESION [None]
  - INTERVERTEBRAL DISC DEGENERATION [None]
  - RENAL TUBULAR ACIDOSIS [None]
  - METASTASES TO BONE [None]
  - UPPER LIMB FRACTURE [None]
  - RENAL FAILURE CHRONIC [None]
  - HYPOTENSION [None]
  - BASAL CELL CARCINOMA [None]
  - BACK PAIN [None]
  - PRURITUS [None]
  - RENAL FAILURE [None]
  - LUNG INFILTRATION [None]
  - INFLUENZA [None]
  - DUODENAL POLYP [None]
  - MALNUTRITION [None]
  - PRESYNCOPE [None]
  - CHRONIC OBSTRUCTIVE PULMONARY DISEASE [None]
  - SYNCOPE [None]
  - ARTERIOSCLEROSIS [None]
  - OSTEONECROSIS OF JAW [None]
  - ANAEMIA OF MALIGNANT DISEASE [None]
  - OSTEOPENIA [None]
  - OSTEOARTHRITIS [None]
  - SPONDYLOLISTHESIS [None]
  - ERYTHEMA [None]
  - NAUSEA [None]
  - LEUKOCYTOSIS [None]
  - HERPES ZOSTER [None]
  - SPINAL FRACTURE [None]
  - SPINAL COMPRESSION FRACTURE [None]
  - RIB FRACTURE [None]
  - RASH [None]
  - HYPOGLYCAEMIA [None]
  - ADRENAL INSUFFICIENCY [None]
  - MALAISE [None]
  - HYPOKALAEMIA [None]
  - DEEP VEIN THROMBOSIS [None]
  - GAIT DISTURBANCE [None]
  - LUNG NEOPLASM [None]
  - SPINAL OSTEOARTHRITIS [None]
  - PULMONARY GRANULOMA [None]
  - PANCREATITIS ACUTE [None]
  - NEPHRITIC SYNDROME [None]
  - DIARRHOEA [None]
  - RENAL LIPOMATOSIS [None]
  - HYPOALBUMINAEMIA [None]
  - ACTINIC KERATOSIS [None]
  - LIPOMA [None]
  - HYPERTENSION [None]
  - METABOLIC ACIDOSIS [None]
  - ASTHENIA [None]
  - DECREASED APPETITE [None]
  - FATIGUE [None]
  - PROTHROMBIN TIME PROLONGED [None]
  - EXPOSED BONE IN JAW [None]
  - PAIN IN JAW [None]
  - CARDIOMEGALY [None]
  - JOINT EFFUSION [None]
  - MUSCULOSKELETAL CHEST PAIN [None]
  - BULLOUS LUNG DISEASE [None]
  - WEIGHT DECREASED [None]
  - CHRONIC SINUSITIS [None]
  - OEDEMA PERIPHERAL [None]
  - PROTEINURIA [None]
  - OSTEOMYELITIS [None]
  - HYPERCOAGULATION [None]
